FAERS Safety Report 7720536-5 (Version None)
Quarter: 2011Q3

REPORT INFORMATION
  Report Type: 
  Country: None (occurrence: None)
  Receive Date: 20110831
  Receipt Date: 20110831
  Transmission Date: 20111222
  Serious: Yes (Other)
  Sender: FDA-Public Use
  Company Number: None

PATIENT
  Age: 22 Year
  Sex: Female
  Weight: 86.182 kg

DRUGS (1)
  1. MIRENA [Suspect]
     Dates: start: 20080313, end: 20110929

REACTIONS (4)
  - LIBIDO DECREASED [None]
  - MUSCLE SPASMS [None]
  - ABDOMINAL DISTENSION [None]
  - MIGRAINE [None]
